FAERS Safety Report 4557976-1 (Version None)
Quarter: 2005Q1

REPORT INFORMATION
  Report Type: 
  Country: None (occurrence: None)
  Receive Date: 20050121
  Receipt Date: 20040326
  Transmission Date: 20050727
  Serious: No
  Sender: FDA-Public Use
  Company Number: US-BRISTOL-MYERS SQUIBB COMPANY-12544532

PATIENT
  Age: 32 Year
  Sex: Male
  Weight: 91 kg

DRUGS (4)
  1. SERZONE [Suspect]
     Indication: ANXIETY
     Dosage: AFTER 2-3 MOS DOSE INCREASED TO 2 ^PILLS^ DAILY BEFORE DISCONTINUING.
     Route: 048
     Dates: start: 20010701, end: 20021201
  2. LIPITOR [Concomitant]
  3. ATIVAN [Concomitant]
  4. CLARITIN [Concomitant]

REACTIONS (3)
  - AMNESIA [None]
  - DEPRESSION [None]
  - FATIGUE [None]
